FAERS Safety Report 7272857-0 (Version None)
Quarter: 2011Q1

REPORT INFORMATION
  Report Type: 
  Country: None (occurrence: None)
  Receive Date: 20110128
  Receipt Date: 20110121
  Transmission Date: 20110831
  Serious: Yes (Other)
  Sender: FDA-Public Use
  Company Number: JP-ACCORD-007012

PATIENT
  Age: 71 Year
  Sex: Male
  Weight: 75 kg

DRUGS (4)
  1. EPIRUBICIN [Suspect]
     Indication: METASTATIC GASTRIC CANCER
     Dosage: 27.00-MG/M2
  2. ETOPOSIDE [Suspect]
     Indication: METASTATIC GASTRIC CANCER
     Dosage: 70.00-MG/M2
  3. CARBOPLATIN [Suspect]
     Indication: METASTATIC GASTRIC CANCER
     Dosage: 400.00-MG/M2
  4. FLUOROURACIL [Suspect]
     Indication: METASTATIC GASTRIC CANCER
     Dosage: 330.00-MG/M2

REACTIONS (8)
  - AGRANULOCYTOSIS [None]
  - NEUTROPENIA [None]
  - NEOPLASM RECURRENCE [None]
  - NEPHRECTOMY [None]
  - LEUKOPENIA [None]
  - HAEMOGLOBIN DECREASED [None]
  - DECREASED APPETITE [None]
  - THROMBOCYTOPENIA [None]
